FAERS Safety Report 8139291-2 (Version None)
Quarter: 2012Q1

REPORT INFORMATION
  Report Type: 
  Country: None (occurrence: None)
  Receive Date: 20120215
  Receipt Date: 20110908
  Transmission Date: 20120608
  Serious: No
  Sender: FDA-Public Use
  Company Number: US-MYLANLABS-2011S1019011

PATIENT
  Age: 48 Year
  Sex: Male

DRUGS (6)
  1. WELLBUTRIN [Concomitant]
  2. ADVAIR DISKUS 100/50 [Concomitant]
  3. ALPRAZOLAM [Suspect]
     Indication: ANXIETY
     Route: 048
     Dates: start: 20080101, end: 20110810
  4. MIDODRINE HYDROCHLORIDE [Concomitant]
  5. ALPRAZOLAM [Suspect]
     Route: 048
     Dates: start: 20110810
  6. SIMVASTATIN [Concomitant]

REACTIONS (3)
  - DIZZINESS [None]
  - COLD SWEAT [None]
  - BLOOD PRESSURE INCREASED [None]
